FAERS Safety Report 5688186-2 (Version None)
Quarter: 2008Q1

REPORT INFORMATION
  Report Type: 
  Country: None (occurrence: None)
  Receive Date: 20080327
  Receipt Date: 20080321
  Transmission Date: 20080703
  Serious: Yes (Hospitalization)
  Sender: FDA-Public Use
  Company Number: 2008000596

PATIENT
  Age: 78 Year
  Sex: Female

DRUGS (8)
  1. ERLOTINIB (ERLOTINIB HCL) (TABLET) (ERLOTINIB HCL) [Suspect]
     Indication: PANCREATIC CARCINOMA METASTATIC
     Dosage: (100 MG, QD) , ORAL
     Route: 048
     Dates: start: 20060110, end: 20071113
  2. BEVACIZUMAB [Suspect]
     Indication: PANCREATIC CARCINOMA METASTATIC
     Dosage: INTRAVENOUS
     Route: 042
     Dates: start: 20060110, end: 20071016
  3. GEMCITABINE [Suspect]
     Indication: PANCREATIC CARCINOMA METASTATIC
     Dosage: (1 QM, QD), INTRAVENOUS
     Route: 042
     Dates: start: 20060110, end: 20071023
  4. OMPRAZOLE (OMEPRAZOLE) [Concomitant]
  5. TEICOPLANIN (TEICOPLANIN) [Concomitant]
  6. TIMETNTIN (TIMENTIN) [Concomitant]
  7. VANCOMYCIN [Concomitant]
  8. LIDOCAINE [Concomitant]

REACTIONS (4)
  - BLOOD PRESSURE DIASTOLIC DECREASED [None]
  - CENTRAL LINE INFECTION [None]
  - PERICARDIAL EFFUSION [None]
  - PLEURAL EFFUSION [None]
